FAERS Safety Report 25907976 (Version 1)
Quarter: 2025Q4

REPORT INFORMATION
  Report Type: Report from Study
  Country: EU (occurrence: EU)
  Receive Date: 20251010
  Receipt Date: 20251010
  Transmission Date: 20260117
  Serious: Yes (Other)
  Sender: MYLAN
  Company Number: EU-ABBVIE-6474041

PATIENT
  Age: 72 Year
  Sex: Male

DRUGS (8)
  1. CLOZAPINE [Suspect]
     Active Substance: CLOZAPINE
     Indication: Product used for unknown indication
     Dosage: UNK
  2. QUETIAPINE [Suspect]
     Active Substance: QUETIAPINE
     Indication: Product used for unknown indication
     Dosage: UNK
  3. RIVASTIGMINE [Suspect]
     Active Substance: RIVASTIGMINE
     Indication: Product used for unknown indication
     Dosage: UNK
  4. FOSCARBIDOPA\FOSLEVODOPA [Suspect]
     Active Substance: FOSCARBIDOPA\FOSLEVODOPA
     Indication: Parkinson^s disease
     Dosage: CRN: 2.0 ML/H; ED: 0.5 ML
  5. CARBIDOPA [Suspect]
     Active Substance: CARBIDOPA
     Indication: Parkinson^s disease
     Dosage: MD: 6.0 ML; CRT: 3.7 ML/H; ED: 1.5 (PERCUTANEOUS J-TUBE)
  6. BISOPROLOL [Concomitant]
     Active Substance: BISOPROLOL
     Indication: Product used for unknown indication
     Dosage: UNK
  7. MARCUMAR [Concomitant]
     Active Substance: PHENPROCOUMON
     Indication: Product used for unknown indication
     Dosage: UNK
  8. ENTACAPONE [Concomitant]
     Active Substance: ENTACAPONE
     Indication: Parkinson^s disease
     Dosage: 200 MILLIGRAM, BID (1 TABLET AROUND 22:30 AND AROUND 3:00)

REACTIONS (17)
  - Dopamine supersensitivity psychosis [Unknown]
  - Hallucination [Recovered/Resolved]
  - Intestinal obstruction [Unknown]
  - Infusion site infection [Unknown]
  - Cognitive disorder [Unknown]
  - Paradoxical drug reaction [Unknown]
  - Neurogenic bowel [Unknown]
  - Aggression [Recovered/Resolved]
  - Disorientation [Unknown]
  - On and off phenomenon [Unknown]
  - Parkinsonism [Recovered/Resolved]
  - Anxiety [Recovered/Resolved]
  - Executive dysfunction [Unknown]
  - Mental disorder [Unknown]
  - Tremor [Recovered/Resolved]
  - Restlessness [Unknown]
  - Constipation [Unknown]

NARRATIVE: CASE EVENT DATE: 20250101
